FAERS Safety Report 6271429-4 (Version None)
Quarter: 2009Q3

REPORT INFORMATION
  Report Type: 
  Country: None (occurrence: None)
  Receive Date: 20090717
  Receipt Date: 20090707
  Transmission Date: 20100115
  Serious: Yes (Hospitalization)
  Sender: FDA-Public Use
  Company Number: FR-CELGENEUS-056-20484-09070335

PATIENT
  Sex: Female

DRUGS (6)
  1. INNOHEP [Suspect]
     Route: 058
     Dates: start: 20080704, end: 20080808
  2. INNOHEP [Suspect]
     Indication: THROMBOSIS
     Route: 058
     Dates: start: 20080809, end: 20080903
  3. CORDARONE [Concomitant]
     Indication: ATRIAL FIBRILLATION
     Route: 048
  4. STABLON [Concomitant]
     Indication: DEPRESSION
     Route: 048
     Dates: start: 20080701
  5. RED BLOOD CELLS [Concomitant]
     Indication: DRUG USE FOR UNKNOWN INDICATION
     Dosage: UNITS
     Route: 065
     Dates: start: 20080702, end: 20080703
  6. ANTIBIOTICS [Concomitant]
     Dates: start: 20080630

REACTIONS (1)
  - THROMBOPHLEBITIS [None]
